FAERS Safety Report 5933817-2 (Version None)
Quarter: 2008Q4

REPORT INFORMATION
  Report Type: 
  Country: None (occurrence: None)
  Receive Date: 20081029
  Receipt Date: 20081020
  Transmission Date: 20090506
  Serious: Yes (Disabling, Other)
  Sender: FDA-Public Use
  Company Number: US-PURDUE-USA_2008_0033804

PATIENT
  Age: 45 Year
  Sex: Female
  Weight: 54 kg

DRUGS (4)
  1. OXYCONTIN [Suspect]
     Indication: NECK PAIN
     Dosage: 60 MG, BID
     Route: 048
  2. VALIUM [Concomitant]
     Indication: MUSCLE RELAXANT THERAPY
  3. LYRICA [Concomitant]
     Indication: FIBROMYALGIA
     Dosage: 150 MG, BID
     Route: 048
  4. OXYIR CAPSULES 5 MG [Suspect]
     Indication: NECK PAIN
     Dosage: UNK MG, UNK
     Route: 048

REACTIONS (3)
  - DENTAL CARIES [None]
  - DRY MOUTH [None]
  - TOOTH EXTRACTION [None]
